FAERS Safety Report 11430825 (Version 1)
Quarter: 2015Q3

REPORT INFORMATION
  Report Type: Spontaneous
  Country: US (occurrence: US)
  Receive Date: 20150828
  Receipt Date: 20150828
  Transmission Date: 20151125
  Serious: No
  Sender: FDA-Public Use
  Company Number: PHEH2014US021132

PATIENT
  Sex: Female

DRUGS (4)
  1. TIROSINT [Concomitant]
     Active Substance: LEVOTHYROXINE SODIUM
     Indication: PRODUCT USED FOR UNKNOWN INDICATION
     Route: 065
  2. VIVELLE DOT [Suspect]
     Active Substance: ESTRADIOL
     Indication: PRODUCT USED FOR UNKNOWN INDICATION
     Dosage: 0.1 MG, UNK
     Route: 062
  3. VIVELLE DOT [Suspect]
     Active Substance: ESTRADIOL
     Dosage: 0.75 MG, UNK
     Route: 062
  4. VIVELLE DOT [Suspect]
     Active Substance: ESTRADIOL
     Dosage: 0.05 MG, UNK
     Route: 062

REACTIONS (2)
  - Irritability [Unknown]
  - Mood swings [Unknown]
